FAERS Safety Report 10355797 (Version 2)
Quarter: 2014Q4

REPORT INFORMATION
  Report Type: Report from Study
  Country: JP (occurrence: JP)
  Receive Date: 20140731
  Receipt Date: 20141107
  Transmission Date: 20150528
  Serious: Yes (Other)
  Sender: FDA-Public Use
  Company Number: JP-MERCK-1407JPN013537

PATIENT
  Age: 66 Year
  Sex: Female
  Weight: 50 kg

DRUGS (9)
  1. SIMEPREVIR [Suspect]
     Active Substance: SIMEPREVIR
     Indication: CHRONIC HEPATITIS C
     Dosage: 100 MG, QD
     Route: 048
     Dates: start: 20140402, end: 20140430
  2. NEXIUM [Concomitant]
     Active Substance: ESOMEPRAZOLE MAGNESIUM
     Indication: GASTROOESOPHAGEAL REFLUX DISEASE
     Dosage: 20 MG, QD
     Route: 048
     Dates: start: 20130227
  3. PEGINTRON [Suspect]
     Active Substance: PEGINTERFERON ALFA-2B
     Dosage: 0.8 MICROGRAM PER KILOGRAM, QW
     Route: 058
     Dates: start: 20140528, end: 20140528
  4. RIBAVIRIN. [Suspect]
     Active Substance: RIBAVIRIN
     Dosage: 200MG AND 400 MG ALTERNATELY, QD
     Route: 048
     Dates: start: 20140514, end: 20140604
  5. AIMIX [Concomitant]
     Active Substance: AMLODIPINE BESYLATE\IRBESARTAN
     Indication: HYPERTENSION
     Dosage: 1 DOSE IN 1 DAY
     Route: 048
     Dates: start: 20131106
  6. PEGINTRON [Suspect]
     Active Substance: PEGINTERFERON ALFA-2B
     Indication: CHRONIC HEPATITIS C
     Dosage: 1.6 MICROGRAM PER KILOGRAM, QW
     Route: 058
     Dates: start: 20140402, end: 20140521
  7. RIBAVIRIN. [Suspect]
     Active Substance: RIBAVIRIN
     Indication: CHRONIC HEPATITIS C
     Dosage: 600 MG, QD
     Route: 048
     Dates: start: 20140402, end: 20140429
  8. RIBAVIRIN. [Suspect]
     Active Substance: RIBAVIRIN
     Dosage: 400 MG, QD
     Route: 048
     Dates: start: 20140430, end: 20140513
  9. AVAPRO [Concomitant]
     Active Substance: IRBESARTAN
     Indication: HYPERTENSION
     Dosage: 100 MG, QD
     Route: 048
     Dates: start: 20101020

REACTIONS (5)
  - Retinopathy [Recovered/Resolved]
  - Neutrophil count decreased [Recovered/Resolved]
  - Haemoglobin decreased [Recovered/Resolved]
  - White blood cell count decreased [Recovered/Resolved]
  - Pruritus [Recovered/Resolved]

NARRATIVE: CASE EVENT DATE: 20140416
